FAERS Safety Report 4746089-1 (Version None)
Quarter: 2005Q3

REPORT INFORMATION
  Report Type: 
  Country: None (occurrence: None)
  Receive Date: 20050816
  Receipt Date: 20050805
  Transmission Date: 20060218
  Serious: Yes (Disabling, Other)
  Sender: FDA-Public Use
  Company Number: PHHO2005IT12290

PATIENT
  Age: 70 Year
  Sex: Female
  Weight: 69 kg

DRUGS (6)
  1. ZOLEDRONATE [Suspect]
     Indication: METASTASES TO BONE
     Dosage: 4 MG, QMO
     Route: 042
     Dates: start: 20011130, end: 20021105
  2. ZOLEDRONATE [Suspect]
     Dosage: UNK, NO TREATMENT
     Dates: start: 20021106, end: 20041021
  3. ZOLEDRONATE [Suspect]
     Dosage: UNK, ONCE/SINGLE
     Dates: start: 20041022, end: 20041022
  4. CYCLOPHOSPHAMIDE [Concomitant]
     Dates: start: 20011004, end: 20020222
  5. METHOTREXATE [Concomitant]
     Dates: start: 20011004, end: 20020222
  6. FLUOROURACIL [Concomitant]
     Dates: start: 20011004, end: 20020222

REACTIONS (20)
  - ASEPTIC NECROSIS BONE [None]
  - BONE PAIN [None]
  - DENTAL CLEANING [None]
  - DENTAL OPERATION [None]
  - GINGIVAL INFECTION [None]
  - HYPERAEMIA [None]
  - LOCAL SWELLING [None]
  - LYMPHADENOPATHY [None]
  - MEDICAL DEVICE REMOVAL [None]
  - ORAL SUBMUCOSAL FIBROSIS [None]
  - OSTEITIS [None]
  - PAIN IN JAW [None]
  - PARAESTHESIA ORAL [None]
  - PAROTIDECTOMY [None]
  - PERIODONTITIS [None]
  - PROCEDURAL SITE REACTION [None]
  - PYREXIA [None]
  - SALIVARY GLAND ADENOMA [None]
  - TOOTH DISORDER [None]
  - TOOTH EXTRACTION [None]
